FAERS Safety Report 5572376-3 (Version None)
Quarter: 2007Q4

REPORT INFORMATION
  Report Type: 
  Country: None (occurrence: None)
  Receive Date: 20071219
  Receipt Date: 20071214
  Transmission Date: 20080405
  Serious: Yes (Death, Other)
  Sender: FDA-Public Use
  Company Number: 2007-04188

PATIENT
  Age: 62 Year
  Sex: Male

DRUGS (1)
  1. VELCADE [Suspect]
     Indication: MULTIPLE MYELOMA
     Dosage: 1.30 MG/M2, INTRAVENOUS
     Route: 042

REACTIONS (3)
  - CARDIAC FAILURE [None]
  - PLEURAL EFFUSION [None]
  - RESPIRATORY TRACT HAEMORRHAGE [None]
